FAERS Safety Report 10490432 (Version 2)
Quarter: 2015Q4

REPORT INFORMATION
  Report Type: Spontaneous
  Country: DK (occurrence: DK)
  Receive Date: 20141002
  Receipt Date: 20151215
  Transmission Date: 20160304
  Serious: Yes (Other)
  Sender: FDA-Public Use
  Company Number: DK-WATSON-2014-20958

PATIENT
  Age: 61 Year
  Sex: Female

DRUGS (4)
  1. TRUXAL                             /00012101/ [Concomitant]
     Active Substance: CHLORPROTHIXENE
     Indication: DEPRESSED MOOD
     Dosage: UNK
     Route: 065
     Dates: start: 200810
  2. IMOVANE [Concomitant]
     Active Substance: ZOPICLONE
     Indication: SLEEP DISORDER
     Dosage: UNK
     Route: 065
     Dates: start: 200810
  3. PROLIA [Suspect]
     Active Substance: DENOSUMAB
     Indication: OSTEOPOROSIS
     Dosage: UNK
     Route: 058
     Dates: start: 2011
  4. ALENDRONAT [Suspect]
     Active Substance: ALENDRONATE SODIUM
     Indication: OSTEOPOROSIS
     Dosage: 70 MG, 1/WEEK
     Route: 048
     Dates: start: 200703, end: 2011

REACTIONS (13)
  - Palpitations [Recovering/Resolving]
  - Abdominal pain [Recovered/Resolved]
  - Malaise [Recovering/Resolving]
  - Gastrointestinal disorder [Recovered/Resolved]
  - Fatigue [Recovering/Resolving]
  - Osteonecrosis of jaw [Recovered/Resolved]
  - Abdominal distension [Recovered/Resolved]
  - Loose tooth [Recovered/Resolved with Sequelae]
  - Depressed mood [Recovering/Resolving]
  - Exposed bone in jaw [Recovered/Resolved]
  - Jaw operation [Recovered/Resolved]
  - Nausea [Recovering/Resolving]
  - Productive cough [Recovering/Resolving]

NARRATIVE: CASE EVENT DATE: 201405
